FAERS Safety Report 8104533-6 (Version None)
Quarter: 2012Q1

REPORT INFORMATION
  Report Type: 
  Country: None (occurrence: None)
  Receive Date: 20120201
  Receipt Date: 20120127
  Transmission Date: 20120608
  Serious: Yes (Hospitalization, Disabling)
  Sender: FDA-Public Use
  Company Number: US-MERCK-1108USA02799

PATIENT
  Age: 53 Year
  Sex: Female

DRUGS (1)
  1. FOSAMAX [Suspect]
     Indication: OSTEOPENIA
     Route: 048
     Dates: start: 20040901, end: 20060601

REACTIONS (9)
  - INJURY [None]
  - FEAR [None]
  - STRESS FRACTURE [None]
  - FEMUR FRACTURE [None]
  - DENTAL CARIES [None]
  - FOOT DEFORMITY [None]
  - LOW TURNOVER OSTEOPATHY [None]
  - FOOT FRACTURE [None]
  - FALL [None]
